FAERS Safety Report 17804738 (Version 1)
Quarter: 2020Q2

REPORT INFORMATION
  Report Type: Spontaneous
  Country: CN (occurrence: CN)
  Receive Date: 20200519
  Receipt Date: 20200519
  Transmission Date: 20200714
  Serious: Yes (Other)
  Sender: FDA-Public Use
  Company Number: CN-PFIZER INC-2020195960

PATIENT
  Age: 47 Year
  Sex: Female
  Weight: 56.5 kg

DRUGS (1)
  1. METHYLPREDNISOLONE SODIUM SUCCINATE. [Suspect]
     Active Substance: METHYLPREDNISOLONE SODIUM SUCCINATE
     Indication: AUTOIMMUNE DISORDER
     Dosage: 80 MG, 1X/DAY
     Route: 041
     Dates: start: 20200414, end: 20200420

REACTIONS (4)
  - Red blood cell count increased [Unknown]
  - Blood pressure increased [Recovering/Resolving]
  - White blood cell count increased [Unknown]
  - Haemoglobin increased [Unknown]

NARRATIVE: CASE EVENT DATE: 20200420
